FAERS Safety Report 6653220-X (Version None)
Quarter: 2010Q1

REPORT INFORMATION
  Report Type: 
  Country: None (occurrence: None)
  Receive Date: 20100311
  Receipt Date: 20100107
  Transmission Date: 20100710
  Serious: No
  Sender: FDA-Public Use
  Company Number: 004092

PATIENT
  Age: 56 Year
  Sex: Female

DRUGS (1)
  1. ROTIGOTINE [Suspect]
     Indication: PARKINSON'S DISEASE
     Dosage: TRANSDERMAL
     Route: 062
     Dates: end: 20080331

REACTIONS (3)
  - HYPOTENSION [None]
  - PARKINSONISM [None]
  - PRODUCT DEPOSIT [None]
